FAERS Safety Report 12299659 (Version 1)
Quarter: 2016Q2

REPORT INFORMATION
  Report Type: Spontaneous
  Country: US (occurrence: None)
  Receive Date: 20160422
  Receipt Date: 20160422
  Transmission Date: 20160815
  Serious: No
  Sender: FDA-Public Use
  Company Number: None

PATIENT
  Age: 85 Year
  Sex: Male

DRUGS (1)
  1. TICE BCG [Suspect]
     Active Substance: BACILLUS CALMETTE-GUERIN SUBSTRAIN TICE LIVE ANTIGEN
     Indication: BLADDER CANCER
     Dosage: 1 VIAL , ONCE WEEKLY X WEEKS
     Route: 019
     Dates: start: 20151007

REACTIONS (3)
  - Dry mouth [None]
  - Dysphagia [None]
  - Nasal dryness [None]

NARRATIVE: CASE EVENT DATE: 20160410
